FAERS Safety Report 16817250 (Version 1)
Quarter: 2019Q3

REPORT INFORMATION
  Report Type: Spontaneous
  Country: US (occurrence: US)
  Receive Date: 20190917
  Receipt Date: 20190917
  Transmission Date: 20191005
  Serious: Yes (Other)
  Sender: FDA-Public Use
  Company Number: PHEH2019US037930

PATIENT
  Sex: Male

DRUGS (1)
  1. PROMACTA [Suspect]
     Active Substance: ELTROMBOPAG OLAMINE
     Indication: ILL-DEFINED DISORDER
     Dosage: 50 MG, QD
     Route: 048
     Dates: start: 20190815

REACTIONS (1)
  - Cerebrovascular accident [Unknown]
